FAERS Safety Report 25978497 (Version 1)
Quarter: 2025Q4

REPORT INFORMATION
  Report Type: Spontaneous
  Country: US (occurrence: US)
  Receive Date: 20251030
  Receipt Date: 20251030
  Transmission Date: 20260118
  Serious: Yes (Other)
  Sender: JOHNSON AND JOHNSON
  Company Number: US-JNJFOC-20251032449

PATIENT

DRUGS (2)
  1. CILTACABTAGENE AUTOLEUCEL [Suspect]
     Active Substance: CILTACABTAGENE AUTOLEUCEL
     Indication: Primary amyloidosis
     Route: 065
  2. IDECABTAGENE VICLEUCEL [Suspect]
     Active Substance: IDECABTAGENE VICLEUCEL

REACTIONS (12)
  - Immune effector cell-associated haematotoxicity [Unknown]
  - Cytokine release syndrome [Recovered/Resolved]
  - Neutropenia [Unknown]
  - Bacteraemia [Unknown]
  - Haemophagocytic lymphohistiocytosis [Recovered/Resolved]
  - Anaemia [Unknown]
  - Thrombocytopenia [Unknown]
  - VIth nerve paralysis [Unknown]
  - Supraventricular tachycardia [Unknown]
  - COVID-19 [Unknown]
  - Diplopia [Unknown]
  - Off label use [Unknown]
